FAERS Safety Report 6908493-2 (Version None)
Quarter: 2010Q3

REPORT INFORMATION
  Report Type: 
  Country: None (occurrence: None)
  Receive Date: 20100805
  Receipt Date: 20100726
  Transmission Date: 20110219
  Serious: Yes (Life-Threatening, Hospitalization, Other)
  Sender: FDA-Public Use
  Company Number: DE-PFIZER INC-2010072061

PATIENT
  Age: 35 Year
  Sex: Female

DRUGS (5)
  1. ZELDOX [Suspect]
     Dosage: 80 MG, PER DAY
     Route: 048
     Dates: end: 20100325
  2. ZELDOX [Suspect]
     Dosage: 100 MG, PER DAY
     Route: 048
     Dates: start: 20100326, end: 20100331
  3. MIRTAZAPINE [Suspect]
     Dosage: 7.5 MG, PER DAY
     Route: 048
     Dates: start: 20100324, end: 20100329
  4. LORAZEPAM [Concomitant]
     Dosage: 2 TO 6 MG PER DAY
     Route: 048
     Dates: start: 20100325, end: 20100328
  5. LORAZEPAM [Concomitant]
     Dosage: UP TO 10 MG PER DAY
     Route: 048
     Dates: start: 20100329, end: 20100406

REACTIONS (8)
  - AGITATION [None]
  - DELUSION [None]
  - DEPRESSED MOOD [None]
  - FEELING GUILTY [None]
  - RESTLESSNESS [None]
  - SCHIZOPHRENIA [None]
  - SUICIDAL IDEATION [None]
  - SUICIDE ATTEMPT [None]
